FAERS Safety Report 5191232-6 (Version None)
Quarter: 2006Q4

REPORT INFORMATION
  Report Type: 
  Country: None (occurrence: None)
  Receive Date: 20061218
  Receipt Date: 20061201
  Transmission Date: 20070319
  Serious: Yes (Other)
  Sender: FDA-Public Use
  Company Number: 226150

PATIENT
  Age: 67 Year
  Sex: Female
  Weight: 60 kg

DRUGS (4)
  1. AVASTIN [Suspect]
     Indication: COLORECTAL CANCER
     Dosage: 30 MG, Q2W, INTRAVENOUS
     Route: 042
     Dates: start: 20060202, end: 20060518
  2. FLUOROURACIL [Concomitant]
  3. LEUCOVORIN CALCIUM [Concomitant]
  4. IRINOTECAN HCL [Concomitant]

REACTIONS (7)
  - BLOOD POTASSIUM DECREASED [None]
  - CHOLINERGIC SYNDROME [None]
  - DEAFNESS BILATERAL [None]
  - LEUKOPENIA [None]
  - METASTASES TO LYMPH NODES [None]
  - PERITONITIS [None]
  - RECTAL PERFORATION [None]
